FAERS Safety Report 9632940 (Version 1)
Quarter: 2013Q4

REPORT INFORMATION
  Report Type: Spontaneous
  Country: GB (occurrence: GB)
  Receive Date: 20131018
  Receipt Date: 20131018
  Transmission Date: 20140711
  Serious: Yes (Hospitalization)
  Sender: FDA-Public Use
  Company Number: PHHY2013GB113654

PATIENT
  Age: 92 Year
  Sex: Female

DRUGS (8)
  1. ATENOLOL [Suspect]
     Indication: ATRIAL FIBRILLATION
     Dosage: 50 MG, QD
     Route: 048
     Dates: end: 20130927
  2. DIGOXIN [Suspect]
     Indication: ATRIAL FIBRILLATION
     Dosage: 187.5 UG, QD
     Route: 048
     Dates: end: 20130927
  3. FUROSEMIDE [Concomitant]
  4. LERCANIDIPINE [Concomitant]
  5. OMEPRAZOLE [Concomitant]
  6. RAMIPRIL [Concomitant]
  7. SIMVASTATIN [Concomitant]
  8. WARFARIN [Concomitant]

REACTIONS (2)
  - Bradycardia [Recovering/Resolving]
  - Syncope [Recovering/Resolving]
